FAERS Safety Report 8414583-8 (Version None)
Quarter: 2012Q2

REPORT INFORMATION
  Report Type: 
  Country: None (occurrence: None)
  Receive Date: 20120605
  Receipt Date: 20110323
  Transmission Date: 20120825
  Serious: Yes (Other)
  Sender: FDA-Public Use
  Company Number: PHHY2011AU116668

PATIENT
  Age: 65 Year
  Sex: Female

DRUGS (1)
  1. ZOLEDRONOC ACID [Suspect]
     Indication: OSTEOPOROSIS

REACTIONS (8)
  - VOMITING [None]
  - HEADACHE [None]
  - CONDITION AGGRAVATED [None]
  - DIARRHOEA [None]
  - PYREXIA [None]
  - FRACTURE PAIN [None]
  - BACK PAIN [None]
  - NAUSEA [None]
